FAERS Safety Report 7609547 (Version 4)
Quarter: 2014Q1

REPORT INFORMATION
  Report Type: Spontaneous
  Country: US (occurrence: US)
  Receive Date: 20100928
  Receipt Date: 20140130
  Transmission Date: 20141002
  Serious: Yes (Hospitalization)
  Sender: FDA-Public Use
  Company Number: US-BAYER-201034666NA

PATIENT
  Age: 26 Year
  Sex: Female
  Weight: 75.9 kg

DRUGS (8)
  1. OCELLA [Suspect]
     Dosage: UNK
     Route: 048
     Dates: start: 200712
  2. YASMIN [Suspect]
     Dosage: UNK
     Route: 048
     Dates: start: 2008
  3. PHENTERMINE [Concomitant]
     Indication: WEIGHT DECREASED
     Dosage: UNK
     Dates: start: 200712
  4. PROZAC [Concomitant]
     Indication: DEPRESSION
     Dosage: UNK
     Dates: start: 200712, end: 201008
  5. CLONAZEPAM [Concomitant]
     Indication: RESTLESS LEGS SYNDROME
     Dosage: UNK
     Dates: start: 200806
  6. IBUPROFEN [Concomitant]
     Indication: MUSCLE SPASMS
     Dosage: 200 MG, UNK
  7. TYLENOL [PARACETAMOL] [Concomitant]
     Indication: HEADACHE
     Dosage: 500 MG, UNK
  8. PAXIL [Concomitant]

REACTIONS (4)
  - Cholelithiasis [None]
  - Cholecystitis chronic [None]
  - Pancreatitis [Recovered/Resolved]
  - Pain [None]
